FAERS Safety Report 8383215-X (Version None)
Quarter: 2012Q2

REPORT INFORMATION
  Report Type: 
  Country: None (occurrence: None)
  Receive Date: 20120524
  Receipt Date: 20120514
  Transmission Date: 20120825
  Serious: Yes (Other)
  Sender: FDA-Public Use
  Company Number: US-BAYER-2012-049319

PATIENT

DRUGS (2)
  1. NAPROXEN SODIUM [Suspect]
     Dosage: 2 DF, UNK
     Route: 048
  2. TEMAZEPAM [Concomitant]
     Dosage: 1 DF, UNK

REACTIONS (3)
  - MEMORY IMPAIRMENT [None]
  - FATIGUE [None]
  - CONFUSIONAL STATE [None]
